FAERS Safety Report 26087602 (Version 2)
Quarter: 2025Q4

REPORT INFORMATION
  Report Type: Report from Study
  Country: US (occurrence: US)
  Receive Date: 20251125
  Receipt Date: 20251230
  Transmission Date: 20260118
  Serious: Yes (Other)
  Sender: ALEXION PHARMACEUTICALS
  Company Number: US-AstraZeneca-CH-00997198A

PATIENT
  Sex: Male

DRUGS (1)
  1. RAVULIZUMAB [Suspect]
     Active Substance: RAVULIZUMAB
     Indication: Myasthenia gravis
     Dosage: UNK
     Route: 065

REACTIONS (7)
  - Cataract [Unknown]
  - Coronary artery stenosis [Unknown]
  - Arthritis [Unknown]
  - Fatigue [Unknown]
  - Arthralgia [Unknown]
  - Hypersomnia [Unknown]
  - Sleep disorder [Unknown]
